FAERS Safety Report 5774401-3 (Version None)
Quarter: 2008Q2

REPORT INFORMATION
  Report Type: 
  Country: None (occurrence: None)
  Receive Date: 20080616
  Receipt Date: 20080606
  Transmission Date: 20081010
  Serious: Yes (Other)
  Sender: FDA-Public Use
  Company Number: NL-ASTRAZENECA-2008AC01337

PATIENT
  Age: 12598 Day
  Sex: Male
  Weight: 78 kg

DRUGS (4)
  1. SEROQUEL [Suspect]
     Indication: BIPOLAR DISORDER
     Route: 048
     Dates: start: 20080402, end: 20080411
  2. SEROQUEL [Suspect]
     Route: 048
     Dates: start: 20080404, end: 20080411
  3. LITHIUM CARBONATE [Concomitant]
     Route: 048
     Dates: start: 20040101
  4. NORTRIPTYLINE HCL [Concomitant]
     Route: 048
     Dates: start: 20040101

REACTIONS (2)
  - DYSPHAGIA [None]
  - LARYNGOSPASM [None]
